FAERS Safety Report 20157274 (Version 1)
Quarter: 2021Q4

REPORT INFORMATION
  Report Type: Spontaneous
  Country: US (occurrence: US)
  Receive Date: 20211207
  Receipt Date: 20211207
  Transmission Date: 20220303
  Serious: Yes (Hospitalization)
  Sender: FDA-Public Use
  Company Number: US-PERRIGO-21US031580

PATIENT
  Age: 33 Year
  Sex: Male

DRUGS (1)
  1. IBUPROFEN [Suspect]
     Active Substance: IBUPROFEN
     Indication: Pyrexia
     Dosage: UNKNOWN, EVERY 4 TO 6 HOURS
     Route: 048

REACTIONS (2)
  - Oesophagitis [Recovered/Resolved]
  - Gastrointestinal haemorrhage [Recovered/Resolved]
